FAERS Safety Report 9351464 (Version 2)
Quarter: 2013Q3

REPORT INFORMATION
  Report Type: Spontaneous
  Country: US (occurrence: US)
  Receive Date: 20130617
  Receipt Date: 20130702
  Transmission Date: 20140515
  Serious: Yes (Hospitalization)
  Sender: FDA-Public Use
  Company Number: US-B.I. PHARMACEUTICALS,INC./RIDGEFIELD-2013-BI-16964BP

PATIENT
  Age: 60 Year
  Sex: Female
  Weight: 93 kg

DRUGS (5)
  1. PRADAXA [Suspect]
     Indication: CEREBROVASCULAR ACCIDENT PROPHYLAXIS
     Dosage: 300 MG
     Route: 048
     Dates: start: 20130521, end: 20130611
  2. PRADAXA [Suspect]
     Indication: ATRIAL FIBRILLATION
  3. CARDIZEM CD [Concomitant]
     Indication: HYPERTENSION
     Dosage: 180 MG
     Route: 048
  4. PROPAFENONE [Concomitant]
     Indication: ATRIAL FIBRILLATION
     Dosage: 675 MG
     Route: 048
  5. XANAX [Concomitant]

REACTIONS (3)
  - Gastrointestinal haemorrhage [Recovered/Resolved]
  - Joint swelling [Unknown]
  - Myalgia [Unknown]
